FAERS Safety Report 15863581 (Version 1)
Quarter: 2019Q1

REPORT INFORMATION
  Report Type: Report from Study
  Country: JP (occurrence: JP)
  Receive Date: 20190124
  Receipt Date: 20190124
  Transmission Date: 20190417
  Serious: Yes (Life-Threatening, Hospitalization, Other)
  Sender: FDA-Public Use
  Company Number: JP-JNJFOC-20190129986

PATIENT
  Age: 55 Year
  Sex: Female
  Weight: 58 kg

DRUGS (5)
  1. DARZALEX [Suspect]
     Active Substance: DARATUMUMAB
     Indication: PLASMA CELL MYELOMA
     Route: 041
     Dates: start: 20180206, end: 20180306
  2. CEFTRIAXONE. [Suspect]
     Active Substance: CEFTRIAXONE
     Indication: PRODUCT USED FOR UNKNOWN INDICATION
     Route: 065
     Dates: start: 20180315, end: 20180315
  3. DARZALEX [Suspect]
     Active Substance: DARATUMUMAB
     Indication: PLASMA CELL MYELOMA
     Dosage: DARATUMUMAB ALSO REPORTED AS 100MG
     Route: 041
     Dates: start: 20171228, end: 20180110
  4. LENALIDOMIDE [Concomitant]
     Active Substance: LENALIDOMIDE
     Indication: PLASMA CELL MYELOMA
     Route: 048
     Dates: start: 20171228
  5. DEXAMETHASONE. [Concomitant]
     Active Substance: DEXAMETHASONE
     Indication: PLASMA CELL MYELOMA
     Route: 065
     Dates: start: 20171228

REACTIONS (7)
  - Malignant neoplasm of unknown primary site [Not Recovered/Not Resolved]
  - Sepsis [Recovered/Resolved]
  - Anaphylactic shock [Recovered/Resolved]
  - Tumour lysis syndrome [Recovered/Resolved]
  - Abdominal pain [Not Recovered/Not Resolved]
  - Eczema [Recovered/Resolved]
  - Neutrophil count decreased [Unknown]

NARRATIVE: CASE EVENT DATE: 20171229
